FAERS Safety Report 10558226 (Version 1)
Quarter: 2014Q4

REPORT INFORMATION
  Report Type: Spontaneous
  Country: US (occurrence: US)
  Receive Date: 20141031
  Receipt Date: 20141031
  Transmission Date: 20150529
  Serious: No
  Sender: FDA-Public Use
  Company Number: US-BAYER-2014-160174

PATIENT
  Age: 59 Year
  Sex: Female
  Weight: 58.96 kg

DRUGS (3)
  1. ALEVE [Suspect]
     Active Substance: NAPROXEN SODIUM
     Indication: BACK PAIN
     Dosage: 3 DF, PRN
     Route: 048
     Dates: end: 201410
  2. ALEVE [Suspect]
     Active Substance: NAPROXEN SODIUM
     Indication: BACK PAIN
     Dosage: 3 DF, PRN
     Route: 048
     Dates: end: 201410
  3. ALEVE [Suspect]
     Active Substance: NAPROXEN SODIUM
     Indication: BACK PAIN
     Dosage: 3 DF, PRN
     Route: 048
     Dates: end: 201410

REACTIONS (2)
  - Extra dose administered [None]
  - Drug ineffective [None]
